FAERS Safety Report 9869315 (Version 2)
Quarter: 2014Q1

REPORT INFORMATION
  Report Type: Spontaneous
  Country: DE (occurrence: DE)
  Receive Date: 20140205
  Receipt Date: 20140213
  Transmission Date: 20141002
  Serious: Yes (Life-Threatening, Other)
  Sender: FDA-Public Use
  Company Number: DE-ASTRAZENECA-2014SE06549

PATIENT
  Age: 28850 Day
  Sex: Male

DRUGS (5)
  1. BRILIQUE [Suspect]
     Indication: ACUTE CORONARY SYNDROME
     Route: 048
     Dates: start: 201302, end: 201401
  2. ASS [Concomitant]
     Indication: ACUTE CORONARY SYNDROME
     Route: 048
     Dates: start: 201302, end: 201401
  3. SIMVASTATIN [Concomitant]
     Indication: ACUTE CORONARY SYNDROME
     Route: 048
     Dates: start: 201302
  4. SIMVASTATIN [Concomitant]
     Indication: HYPERLIPIDAEMIA
     Route: 048
     Dates: start: 201302
  5. METOPROLOL [Concomitant]
     Route: 048
     Dates: start: 201302

REACTIONS (2)
  - Thrombosis in device [Recovered/Resolved]
  - Gastrointestinal infection [Unknown]
